FAERS Safety Report 24706385 (Version 1)
Quarter: 2024Q4

REPORT INFORMATION
  Report Type: Spontaneous
  Country: CN (occurrence: CN)
  Receive Date: 20241206
  Receipt Date: 20241206
  Transmission Date: 20250115
  Serious: Yes (Other)
  Sender: SANOFI AVENTIS
  Company Number: CN-DialogSolutions-SAAVPROD-PI702341-C1

PATIENT
  Age: 76 Year
  Sex: Male
  Weight: 50 kg

DRUGS (14)
  1. OXALIPLATIN [Suspect]
     Active Substance: OXALIPLATIN
     Indication: Gastric cancer stage IV
     Dosage: 100 MG, INTRAOPERATIVE ADMINISTRATION
     Dates: start: 20220627
  2. OXALIPLATIN [Suspect]
     Active Substance: OXALIPLATIN
     Dosage: 200 MG, Q3W, (130 MG/M2) D1
     Dates: start: 20220723
  3. OXALIPLATIN [Suspect]
     Active Substance: OXALIPLATIN
     Dosage: 200 MG, Q3W, (130 MG/M2) D1
     Dates: start: 20220818
  4. OXALIPLATIN [Suspect]
     Active Substance: OXALIPLATIN
     Dosage: 200 MG, Q3W, (130 MG/M2) D1
     Dates: start: 20220910
  5. CAPECITABINE [Suspect]
     Active Substance: CAPECITABINE
     Indication: Gastric cancer stage IV
     Dosage: 1500 MG, BID, (1000 MG/M2) D1-14, Q3W
     Dates: start: 20220723
  6. CAPECITABINE [Suspect]
     Active Substance: CAPECITABINE
     Dosage: 1500 MG, BID, (1000 MG/M2) D1-14, Q3W
     Dates: start: 20220818
  7. CAPECITABINE [Suspect]
     Active Substance: CAPECITABINE
     Dosage: 1500 MG, BID, (1000 MG/M2) D1-14, Q3W
     Dates: start: 20220910
  8. CATEQUENTINIB [Suspect]
     Active Substance: CATEQUENTINIB
     Indication: Gastric cancer stage IV
     Dosage: 8 MG, QCY, D1-14
     Route: 048
     Dates: start: 20220723
  9. CATEQUENTINIB [Suspect]
     Active Substance: CATEQUENTINIB
     Dosage: 8 MG, QCY, D1-14
     Route: 048
     Dates: start: 20220818
  10. CATEQUENTINIB [Suspect]
     Active Substance: CATEQUENTINIB
     Dosage: 8 MG, QCY, D1-14
     Route: 048
     Dates: start: 20220910
  11. TISLELIZUMAB [Suspect]
     Active Substance: TISLELIZUMAB
     Indication: Gastric cancer stage IV
     Dosage: 200 MG, QCY, D1
     Dates: start: 20220723
  12. TISLELIZUMAB [Suspect]
     Active Substance: TISLELIZUMAB
     Dosage: 200 MG, QCY, D1
     Dates: start: 20220818
  13. TISLELIZUMAB [Suspect]
     Active Substance: TISLELIZUMAB
     Dosage: 200 MG, QCY, D1
     Dates: start: 20220910
  14. IRINOTECAN [Suspect]
     Active Substance: IRINOTECAN
     Indication: Gastric cancer stage IV
     Dosage: 100 MG, INTRAOPERATIVE ADMINISTRATION
     Dates: start: 20220627

REACTIONS (6)
  - Cytokine release syndrome [Recovered/Resolved]
  - Loss of consciousness [Recovered/Resolved]
  - Foaming at mouth [Recovered/Resolved]
  - Seizure [Recovered/Resolved]
  - Systemic inflammatory response syndrome [Recovered/Resolved]
  - Ischaemic cerebral infarction [Recovering/Resolving]

NARRATIVE: CASE EVENT DATE: 20220901
